FAERS Safety Report 5248365-5 (Version None)
Quarter: 2007Q1

REPORT INFORMATION
  Report Type: 
  Country: None (occurrence: None)
  Receive Date: 20070227
  Receipt Date: 20070215
  Transmission Date: 20070707
  Serious: Yes (Hospitalization)
  Sender: FDA-Public Use
  Company Number: US-SHR-US-2007-002608

PATIENT
  Age: 35 Year
  Sex: Male
  Weight: 33 kg

DRUGS (8)
  1. CAMPATH [Suspect]
     Indication: STEM CELL TRANSPLANT
     Dosage: 20 MG, 1X/DAY, X5DAYS
     Route: 058
     Dates: start: 20061113, end: 20061116
  2. BENADRYL ^ACHE^ [Concomitant]
     Indication: PREMEDICATION
     Dosage: 50 MG, UNK
  3. TYLENOL [Concomitant]
     Indication: PREMEDICATION
     Dosage: 650 MG, UNK
  4. DECADRON                                /CAN/ [Concomitant]
     Indication: PREMEDICATION
     Dosage: 4 MG, UNK
  5. ACYCLOVIR [Concomitant]
     Indication: ANTI-INFECTIVE THERAPY
     Dosage: 400 MG, UNK
     Dates: start: 20061113
  6. FLUCONAZOLE [Concomitant]
     Indication: ANTI-INFECTIVE THERAPY
     Dosage: 200 MG, UNK
     Dates: start: 20061113
  7. FLUDARA [Suspect]
     Dosage: 40 MG, UNK
     Dates: start: 20061115, end: 20061117
  8. NEXIUM [Concomitant]

REACTIONS (10)
  - ACUTE RESPIRATORY DISTRESS SYNDROME [None]
  - ASPIRATION [None]
  - CARDIOGENIC SHOCK [None]
  - LEUKOPENIA [None]
  - PERICARDIAL EFFUSION [None]
  - PLEURAL EFFUSION [None]
  - PNEUMONIA BACTERIAL [None]
  - RESPIRATORY FAILURE [None]
  - SERRATIA INFECTION [None]
  - SINUS TACHYCARDIA [None]
